FAERS Safety Report 7461434-4 (Version None)
Quarter: 2011Q2

REPORT INFORMATION
  Report Type: 
  Country: None (occurrence: None)
  Receive Date: 20110506
  Receipt Date: 20110504
  Transmission Date: 20111010
  Serious: No
  Sender: FDA-Public Use
  Company Number: US-PFIZER INC-2011096405

PATIENT
  Sex: Male
  Weight: 81.633 kg

DRUGS (6)
  1. GABAPENTIN [Suspect]
     Indication: HYPOAESTHESIA
  2. GABAPENTIN [Suspect]
     Indication: PAIN IN EXTREMITY
  3. GABAPENTIN [Suspect]
     Indication: NERVE INJURY
     Dosage: UNK
     Dates: start: 20060101, end: 20060101
  4. SYNTHROID [Concomitant]
     Indication: HYPOTHYROIDISM
     Dosage: UNK
  5. ADVIL LIQUI-GELS [Concomitant]
     Indication: NECK PAIN
  6. ADVIL LIQUI-GELS [Concomitant]
     Indication: BACK PAIN
     Dosage: UNK

REACTIONS (1)
  - DRUG INEFFECTIVE [None]
